FAERS Safety Report 9281573 (Version 1)
Quarter: 2013Q2

REPORT INFORMATION
  Report Type: Spontaneous
  Country: US (occurrence: US)
  Receive Date: 20130509
  Receipt Date: 20130509
  Transmission Date: 20140414
  Serious: No
  Sender: FDA-Public Use
  Company Number: US-ASTRAZENECA-2013SE28604

PATIENT
  Age: 68 Year
  Sex: Female
  Weight: 72.6 kg

DRUGS (5)
  1. ATACAND HCT [Suspect]
     Indication: HYPERTENSION
     Dosage: 16 + 12.5 MG DAILY
     Route: 048
     Dates: start: 2000
  2. ATACAND HCT [Suspect]
     Indication: HYPERTENSION
     Dosage: ONE TABLET OF 16 + 12.5 MG
     Route: 048
  3. ATACAND HCT [Suspect]
     Indication: HYPERTENSION
     Dosage: ONE TABLET OF 16 + 12.5 MG
     Route: 048
  4. ASA [Concomitant]
  5. ADVIL [Concomitant]
     Indication: MIGRAINE
     Dosage: PRN

REACTIONS (6)
  - Nausea [Unknown]
  - Hyperhidrosis [Unknown]
  - Abdominal pain upper [Unknown]
  - Malaise [Unknown]
  - Product taste abnormal [Unknown]
  - Therapeutic response unexpected [Unknown]
